FAERS Safety Report 8240686 (Version 2)
Quarter: 2012Q4

REPORT INFORMATION
  Report Type: 
  Country: CN (occurrence: CN)
  Receive Date: 20111111
  Receipt Date: 20121211
  Transmission Date: 20130627
  Serious: Yes (Hospitalization)
  Sender: FDA-Public Use
  Company Number: PHHY2011CN098141

PATIENT
  Age: 92 Year
  Sex: Male

DRUGS (5)
  1. ZOMETA [Suspect]
     Indication: METASTASES TO BONE
     Dosage: 4 mg, QD
     Route: 042
     Dates: start: 20110917, end: 20110917
  2. TRIPTORELIN [Concomitant]
     Dosage: 15 mg, UNK
     Route: 030
  3. CASODEX [Concomitant]
     Dosage: 5 mg/day
     Route: 048
  4. NORVASK [Concomitant]
     Dosage: 1 DF/day
     Route: 048
  5. ASPIRIN [Concomitant]
     Dosage: 200 mg/Day
     Route: 048

REACTIONS (5)
  - Cyanosis [Recovered/Resolved]
  - Lip discolouration [Recovered/Resolved]
  - Dyspnoea [Recovered/Resolved]
  - Pyrexia [Recovered/Resolved]
  - Chills [Recovered/Resolved]
